FAERS Safety Report 6631741-3 (Version None)
Quarter: 2010Q1

REPORT INFORMATION
  Report Type: 
  Country: None (occurrence: None)
  Receive Date: 20100312
  Receipt Date: 20100302
  Transmission Date: 20100710
  Serious: Yes (Death, Life-Threatening)
  Sender: FDA-Public Use
  Company Number: IL-NOVOPROD-305084

PATIENT
  Age: 26 Year
  Sex: Female

DRUGS (2)
  1. NOVOSEVEN [Suspect]
     Indication: HAEMORRHAGE
     Dosage: 8.2 MG, UNK
     Route: 042
     Dates: start: 20100228, end: 20100228
  2. PARACETAMOL [Concomitant]

REACTIONS (1)
  - DEATH [None]
